FAERS Safety Report 10822199 (Version 3)
Quarter: 2015Q2

REPORT INFORMATION
  Report Type: Spontaneous
  Country: US (occurrence: None)
  Receive Date: 20150213
  Receipt Date: 20150403
  Transmission Date: 20150821
  Serious: Yes (Hospitalization, Other)
  Sender: FDA-Public Use
  Company Number: ADR-2015-00303

PATIENT
  Age: 50 Year
  Sex: Female

DRUGS (4)
  1. COMPOUNDED BACLOFEN INTRATHECAL [Suspect]
     Active Substance: BACLOFEN
     Indication: SPINAL PAIN
  2. MORPHINE [Suspect]
     Active Substance: MORPHINE
  3. COMPOUNDED MORPHINE INTRATHECAL [Suspect]
     Active Substance: MORPHINE
  4. BACLOFEN. [Suspect]
     Active Substance: BACLOFEN

REACTIONS (8)
  - Device infusion issue [None]
  - Diarrhoea [None]
  - Device battery issue [None]
  - Incorrect dose administered [None]
  - Vomiting [None]
  - Feeling abnormal [None]
  - Nausea [None]
  - Muscle spasms [None]

NARRATIVE: CASE EVENT DATE: 20150203
